FAERS Safety Report 7478627-2 (Version None)
Quarter: 2011Q2

REPORT INFORMATION
  Report Type: 
  Country: None (occurrence: None)
  Receive Date: 20110513
  Receipt Date: 20110510
  Transmission Date: 20111010
  Serious: Yes (Hospitalization, Other)
  Sender: FDA-Public Use
  Company Number: CHPA2011IE06565

PATIENT
  Age: 78 Year
  Sex: Female

DRUGS (1)
  1. SCOPOLAMINE [Suspect]
     Indication: SALIVARY HYPERSECRETION
     Dosage: 1 DF, Q72H
     Route: 062
     Dates: start: 20100101

REACTIONS (4)
  - CONFUSIONAL STATE [None]
  - OFF LABEL USE [None]
  - DEHYDRATION [None]
  - CONSTIPATION [None]
